FAERS Safety Report 14614911 (Version 3)
Quarter: 2018Q2

REPORT INFORMATION
  Report Type: Report from Study
  Country: BE (occurrence: BE)
  Receive Date: 20180308
  Receipt Date: 20180622
  Transmission Date: 20180711
  Serious: Yes (Hospitalization, Other)
  Sender: FDA-Public Use
  Company Number: BE-PFIZER INC-2018090596

PATIENT
  Age: 75 Year
  Sex: Female
  Weight: 63.3 kg

DRUGS (17)
  1. BEVACIZUMAB. [Suspect]
     Active Substance: BEVACIZUMAB
     Dosage: 975 MG, EVERY 3 WEEKS
     Route: 042
     Dates: start: 20160317
  2. SIMVASTATIN. [Concomitant]
     Active Substance: SIMVASTATIN
  3. SIPRALEXA [Concomitant]
     Active Substance: ESCITALOPRAM OXALATE
  4. STEOVIT D3 [Concomitant]
     Active Substance: CALCIUM CARBONATE\CHOLECALCIFEROL
     Dosage: UNK
     Route: 065
     Dates: start: 20160812
  5. TRADONAL [Concomitant]
     Active Substance: TRAMADOL HYDROCHLORIDE
  6. BEVACIZUMAB. [Suspect]
     Active Substance: BEVACIZUMAB
     Dosage: 915 MG, EVERY 3 WEEKS
     Route: 042
     Dates: start: 20160902
  7. FRAXODI [Concomitant]
     Active Substance: NADROPARIN CALCIUM
     Dosage: UNK
     Route: 065
     Dates: start: 201512
  8. EFEXOR [Concomitant]
     Active Substance: VENLAFAXINE HYDROCHLORIDE
  9. ASAFLOW [Concomitant]
     Active Substance: ASPIRIN
     Dosage: UNK
     Route: 065
     Dates: start: 201511
  10. AMOCLANE [Concomitant]
     Indication: INFECTION
     Dosage: UNK
     Route: 065
     Dates: start: 20160202, end: 20160207
  11. PARACETAMOL [Concomitant]
     Active Substance: ACETAMINOPHEN
  12. CARBOPLATIN. [Suspect]
     Active Substance: CARBOPLATIN
     Indication: OVARIAN CANCER
     Dosage: 2 AUC, WEEKLY
     Route: 042
     Dates: start: 20160225
  13. BEVACIZUMAB. [Suspect]
     Active Substance: BEVACIZUMAB
     Indication: OVARIAN CANCER
     Dosage: 975 MG, EVERY 3 WEEKS
     Route: 042
     Dates: start: 20160520
  14. BEVACIZUMAB. [Suspect]
     Active Substance: BEVACIZUMAB
     Dosage: 990 MG, EVERY 3 WEEKS
     Route: 042
     Dates: start: 20160426
  15. PACLITAXEL. [Suspect]
     Active Substance: PACLITAXEL
     Indication: OVARIAN CANCER
     Dosage: 60 MG/M2, WEEKLY
     Route: 042
     Dates: start: 20160225
  16. BEVACIZUMAB. [Suspect]
     Active Substance: BEVACIZUMAB
     Dosage: 990 MG, EVERY 3 WEEKS
     Route: 042
     Dates: start: 20160308
  17. BEVACIZUMAB. [Suspect]
     Active Substance: BEVACIZUMAB
     Dosage: 963 MG, EVERY 3 WEEKS
     Route: 042
     Dates: start: 20160225

REACTIONS (6)
  - Dysgeusia [Not Recovered/Not Resolved]
  - Wound dehiscence [Not Recovered/Not Resolved]
  - Epilepsy [Recovered/Resolved]
  - Spinal compression fracture [Not Recovered/Not Resolved]
  - Proteinuria [Recovered/Resolved]
  - Hypertension [Not Recovered/Not Resolved]

NARRATIVE: CASE EVENT DATE: 20160325
